FAERS Safety Report 23362541 (Version 1)
Quarter: 2024Q1

REPORT INFORMATION
  Report Type: Spontaneous
  Country: TR (occurrence: TR)
  Receive Date: 20240103
  Receipt Date: 20240103
  Transmission Date: 20240410
  Serious: Yes (Life-Threatening, Other)
  Sender: FDA-Public Use
  Company Number: TR-LUNDBECK-DKLU3072149

PATIENT
  Age: 41 Year
  Sex: Female
  Weight: 120 kg

DRUGS (1)
  1. CIPRALEX [Suspect]
     Active Substance: ESCITALOPRAM OXALATE
     Indication: Anxiety disorder
     Dosage: DOSE OF MEDICINE 10 MG, LAST ADMIN DATE: 2023
     Route: 048
     Dates: start: 20230301

REACTIONS (7)
  - Menstruation irregular [Not Recovered/Not Resolved]
  - Underdose [Unknown]
  - Heavy menstrual bleeding [Not Recovered/Not Resolved]
  - Syncope [Unknown]
  - Adnexa uteri pain [Unknown]
  - Asthenia [Unknown]
  - Flatulence [Unknown]

NARRATIVE: CASE EVENT DATE: 20231001
